FAERS Safety Report 20086762 (Version 1)
Quarter: 2021Q4

REPORT INFORMATION
  Report Type: Spontaneous
  Country: US (occurrence: US)
  Receive Date: 20211118
  Receipt Date: 20211118
  Transmission Date: 20220303
  Serious: Yes (Other)
  Sender: FDA-Public Use
  Company Number: US-009507513-2111USA004504

PATIENT
  Age: 79 Year
  Sex: Female

DRUGS (3)
  1. BELSOMRA [Suspect]
     Active Substance: SUVOREXANT
     Indication: Insomnia
     Dosage: UNK
     Route: 048
     Dates: start: 202011, end: 202108
  2. BELSOMRA [Suspect]
     Active Substance: SUVOREXANT
     Indication: Insomnia
     Dosage: 20 MILLIGRAM
     Route: 048
     Dates: start: 202108
  3. MELATONIN [Suspect]
     Active Substance: MELATONIN
     Dosage: UNK

REACTIONS (5)
  - Immunodeficiency [Not Recovered/Not Resolved]
  - Drug ineffective [Not Recovered/Not Resolved]
  - Illness [Not Recovered/Not Resolved]
  - Irritability [Not Recovered/Not Resolved]
  - Product use issue [Unknown]

NARRATIVE: CASE EVENT DATE: 20201101
